FAERS Safety Report 5534012-1 (Version None)
Quarter: 2007Q4

REPORT INFORMATION
  Report Type: 
  Country: None (occurrence: None)
  Receive Date: 20071130
  Receipt Date: 20071126
  Transmission Date: 20080405
  Serious: Yes (Hospitalization, Other)
  Sender: FDA-Public Use
  Company Number: 2007SP023451

PATIENT
  Age: 45 Year
  Sex: Male
  Weight: 95 kg

DRUGS (2)
  1. TEMODAR [Suspect]
     Indication: GLIOBLASTOMA MULTIFORME
     Dosage: PO;, PO
     Route: 048
     Dates: start: 20070305, end: 20070320
  2. TEMODAR [Suspect]
     Indication: GLIOBLASTOMA MULTIFORME
     Dosage: PO;, PO
     Route: 048
     Dates: start: 20061108

REACTIONS (4)
  - DEHYDRATION [None]
  - HIATUS HERNIA [None]
  - NAUSEA [None]
  - VOMITING [None]
